FAERS Safety Report 9963340 (Version 1)
Quarter: 2014Q1

REPORT INFORMATION
  Report Type: Spontaneous
  Country: US (occurrence: US)
  Receive Date: 20140305
  Receipt Date: 20140305
  Transmission Date: 20141002
  Serious: No
  Sender: FDA-Public Use
  Company Number: US-ABBVIE-13P-163-1117234-00

PATIENT
  Sex: Female
  Weight: 97.16 kg

DRUGS (5)
  1. HUMIRA [Suspect]
     Indication: RHEUMATOID ARTHRITIS
     Dates: start: 201305
  2. LISINOPRIL HCTZ [Concomitant]
     Indication: BLOOD PRESSURE
  3. NEXIUM [Concomitant]
     Indication: GASTROOESOPHAGEAL REFLUX DISEASE
  4. PREDNISONE [Concomitant]
     Indication: RHEUMATOID ARTHRITIS
  5. FOLIC ACID W/VITAMIN B COMPLEX [Concomitant]
     Indication: PRODUCT USED FOR UNKNOWN INDICATION

REACTIONS (4)
  - Chest discomfort [Recovering/Resolving]
  - Fatigue [Recovering/Resolving]
  - Asthenia [Recovering/Resolving]
  - Pneumonia [Recovering/Resolving]
